FAERS Safety Report 8596762-2 (Version None)
Quarter: 2012Q3

REPORT INFORMATION
  Report Type: 
  Country: None (occurrence: None)
  Receive Date: 20120815
  Receipt Date: 20120808
  Transmission Date: 20120928
  Serious: Yes (Hospitalization, Other)
  Sender: FDA-Public Use
  Company Number: BR-PFIZER INC-2012193502

PATIENT
  Age: 65 Year
  Sex: Female

DRUGS (2)
  1. LATANOPROST [Suspect]
     Indication: GLAUCOMA
     Dosage: 1.5 UG (ONE DROP IN THE RIGHT EYE), 1X/DAY
     Route: 047
     Dates: start: 20070101
  2. XALCOM [Suspect]
     Indication: GLAUCOMA
     Dosage: [LATANOPROST 1.5 UG]/[TIMOLOL MALEATE 150 UG] (ONE DROP IN THE LEFT EYE), 1X/DAY
     Route: 047
     Dates: start: 20070101

REACTIONS (1)
  - NEPHROLITHIASIS [None]
